FAERS Safety Report 20651833 (Version 2)
Quarter: 2022Q2

REPORT INFORMATION
  Report Type: Spontaneous
  Country: US (occurrence: None)
  Receive Date: 20220330
  Receipt Date: 20220412
  Transmission Date: 20220721
  Serious: No
  Sender: FDA-Public Use
  Company Number: 2022A118998

PATIENT
  Age: 885 Month
  Sex: Female
  Weight: 81.6 kg

DRUGS (1)
  1. FASENRA [Suspect]
     Active Substance: BENRALIZUMAB
     Indication: Asthma
     Dosage: 30MG/ML EVERY EIGHT WEEKS
     Route: 058

REACTIONS (5)
  - Fluid retention [Not Recovered/Not Resolved]
  - Injection site pain [Recovered/Resolved]
  - Device leakage [Unknown]
  - Incorrect dose administered by device [Unknown]
  - Product use in unapproved indication [Unknown]

NARRATIVE: CASE EVENT DATE: 20220201
